FAERS Safety Report 13960740 (Version 1)
Quarter: 2017Q3

REPORT INFORMATION
  Report Type: Spontaneous
  Country: US (occurrence: US)
  Receive Date: 20170912
  Receipt Date: 20170912
  Transmission Date: 20171128
  Serious: No
  Sender: FDA-Public Use
  Company Number: US-BAYER-2017-173128

PATIENT
  Age: 3 Year
  Sex: Female

DRUGS (1)
  1. MIRALAX [Suspect]
     Active Substance: POLYETHYLENE GLYCOL 3350
     Indication: CONSTIPATION
     Dosage: 2 TBSP; BID
     Dates: start: 2012, end: 2015

REACTIONS (2)
  - Obsessive-compulsive disorder [Recovered/Resolved]
  - Fear [None]

NARRATIVE: CASE EVENT DATE: 2014
